FAERS Safety Report 4743007-7 (Version None)
Quarter: 2005Q3

REPORT INFORMATION
  Report Type: 
  Country: None (occurrence: None)
  Receive Date: 20050809
  Receipt Date: 20050803
  Transmission Date: 20060218
  Serious: Yes (Death)
  Sender: FDA-Public Use
  Company Number: USA-2005-0020066

PATIENT
  Age: 53 Year
  Sex: Male
  Weight: 51.7 kg

DRUGS (5)
  1. MORPHINE [Suspect]
  2. AMITRIPTYLINE HCL [Suspect]
  3. DIAZEPAM [Suspect]
  4. TETRAHYDROCANNABINOL (TETRAHYDROCANNABINOL) [Suspect]
  5. ETHANOL (ETHANOL) [Suspect]

REACTIONS (10)
  - ADHESION [None]
  - BLOOD CANNABINOIDS INCREASED [None]
  - BLOOD ETHANOL INCREASED [None]
  - CORONARY ARTERY ATHEROSCLEROSIS [None]
  - CORONARY ARTERY DISEASE [None]
  - CORONARY ARTERY STENOSIS [None]
  - EMPHYSEMA [None]
  - EMPHYSEMATOUS BULLA [None]
  - ONYCHOMADESIS [None]
  - POISONING [None]
